FAERS Safety Report 18478720 (Version 1)
Quarter: 2020Q4

REPORT INFORMATION
  Report Type: Spontaneous
  Country: IT (occurrence: IT)
  Receive Date: 20201109
  Receipt Date: 20201109
  Transmission Date: 20210114
  Serious: Yes (Death, Life-Threatening, Hospitalization, Other)
  Sender: FDA-Public Use
  Company Number: IT-DRREDDYS-GER/ITL/20/0128636

PATIENT
  Age: 61 Year
  Sex: Male

DRUGS (12)
  1. CASPOFUNGIN [Suspect]
     Active Substance: CASPOFUNGIN
     Indication: ANTIFUNGAL PROPHYLAXIS
     Route: 065
  2. TACROLIMUS. [Suspect]
     Active Substance: TACROLIMUS
     Dosage: .075 MG/KG DAILY; STARTED FROM POD3; FROM POD9 DISCONTINUOUSLY
     Dates: start: 201611, end: 2016
  3. MEROPENEM. [Suspect]
     Active Substance: MEROPENEM
     Indication: ANTIBIOTIC PROPHYLAXIS
     Route: 065
  4. METHYLPREDNISOLONE. [Suspect]
     Active Substance: METHYLPREDNISOLONE
     Indication: IMMUNOSUPPRESSANT DRUG THERAPY
     Dosage: INDUCTION FROM POSTOPERATIVE DAY (POD) 1
     Dates: start: 201611, end: 2016
  5. METHYLPREDNISOLONE. [Suspect]
     Active Substance: METHYLPREDNISOLONE
     Dosage: 40 MILLIGRAM DAILY; FROM POD19
     Dates: start: 2016
  6. EVEROLIMUS. [Suspect]
     Active Substance: EVEROLIMUS
     Indication: IMMUNOSUPPRESSANT DRUG THERAPY
     Dosage: FROM POD7 TO POD9
     Route: 065
  7. ETANERCEPT [Suspect]
     Active Substance: ETANERCEPT
     Indication: GRAFT VERSUS HOST DISEASE
     Dosage: FROM POD19
     Route: 058
     Dates: start: 2016
  8. GANCICLOVIR. [Suspect]
     Active Substance: GANCICLOVIR
     Indication: ANTIVIRAL TREATMENT
     Dosage: 5 MG/KG/D
     Route: 065
  9. ANTITHYMOCYTE GLOBULIN [Suspect]
     Active Substance: THYMOCYTE IMMUNE GLOBULIN NOS
     Indication: GRAFT VERSUS HOST DISEASE
     Dosage: 1.5 MG/KG DAILY; FROM POD19 FOR 3 DAYS
     Dates: start: 2016, end: 2016
  10. EVEROLIMUS. [Suspect]
     Active Substance: EVEROLIMUS
     Indication: IMMUNOSUPPRESSANT DRUG THERAPY
     Dosage: EVEROLIMUS AT 3 MG/DAY FROM POD7
     Dates: start: 201611, end: 2016
  11. TACROLIMUS. [Suspect]
     Active Substance: TACROLIMUS
     Indication: IMMUNOSUPPRESSANT DRUG THERAPY
     Dosage: .04 MG/KG DAILY; FROM POD 19
     Dates: start: 2016
  12. DAPTOMYCIN. [Suspect]
     Active Substance: DAPTOMYCIN
     Indication: ANTIBIOTIC PROPHYLAXIS
     Route: 065

REACTIONS (17)
  - Aspergillus infection [Fatal]
  - Leukopenia [Recovering/Resolving]
  - Platelet count decreased [Unknown]
  - Diarrhoea [Unknown]
  - Cytomegalovirus infection [Fatal]
  - Chimerism [Unknown]
  - Haemoglobin decreased [Unknown]
  - Enteritis [Unknown]
  - Bone marrow disorder [Unknown]
  - Multiple organ dysfunction syndrome [Fatal]
  - Malnutrition [Unknown]
  - Graft versus host disease in skin [Unknown]
  - Aplastic anaemia [Unknown]
  - Septic shock [Fatal]
  - Systemic inflammatory response syndrome [Unknown]
  - Leukopenia [Unknown]
  - Enterococcal infection [Fatal]

NARRATIVE: CASE EVENT DATE: 2016
